FAERS Safety Report 18307603 (Version 1)
Quarter: 2020Q3

REPORT INFORMATION
  Report Type: Spontaneous
  Country: DE (occurrence: DE)
  Receive Date: 20200924
  Receipt Date: 20200924
  Transmission Date: 20201103
  Serious: Yes (Hospitalization)
  Sender: FDA-Public Use
  Company Number: DE-009507513-2009DEU005362

PATIENT
  Age: 62 Year
  Sex: Male

DRUGS (19)
  1. TORSEMIDE. [Suspect]
     Active Substance: TORSEMIDE
     Dosage: 20 MG, 2?2?0?0, TABLET
  2. OMEPRAZOLE. [Concomitant]
     Active Substance: OMEPRAZOLE
     Dosage: 40 MG, 0?0?1?0, CAPSULE
  3. INSULIN GLARGINE [Concomitant]
     Active Substance: INSULIN GLARGINE
     Dosage: ACCORDING THE SCHEME, SOLUTION FOR INJECTION/INFUSION
     Route: 058
  4. LERCANIDIPINE [Suspect]
     Active Substance: LERCANIDIPINE
     Dosage: 20 MG, 0.5?0?0.5?0, TABLET
  5. TAMSULOSIN HYDROCHLORIDE. [Concomitant]
     Active Substance: TAMSULOSIN HYDROCHLORIDE
     Dosage: 0.4 MG, 1?0?0?0, RETARD CAPSULES, DOSAGE FORM: PROLONGED?RELEASE CAPSULE
  6. PREGABALIN. [Concomitant]
     Active Substance: PREGABALIN
     Dosage: 75 MG, 1?0?1?0, CAPSULE
  7. INDAPAMIDE (+) PERINDOPRIL [Suspect]
     Active Substance: INDAPAMIDE\PERINDOPRIL
     Dosage: 1.25|5 MG, 1?0?0?0, TABLET
  8. ATORVASTATIN [Suspect]
     Active Substance: ATORVASTATIN
     Dosage: 40 MG, 0?0?1?0, TABLET
  9. NITROGLYCERIN. [Concomitant]
     Active Substance: NITROGLYCERIN
     Dosage: 0.4 MG, AS NEEDED, TABLET
  10. FORMOTEROL FUMARATE [Concomitant]
     Active Substance: FORMOTEROL FUMARATE
     Dosage: 12 ?G, 1?0?0?0, CAPSULES FOR INHALATION
  11. CHOLECALCIFEROL [Concomitant]
     Active Substance: CHOLECALCIFEROL
     Dosage: 1000 IU, 0?1?0?0, CAPSULE
  12. EZETIMIBE. [Suspect]
     Active Substance: EZETIMIBE
     Dosage: 10 MG, 1?0?0?0, TABLET
  13. BUPROPION. [Concomitant]
     Active Substance: BUPROPION
     Dosage: 150 MG, AS NEEDED, TABLET
  14. ACTRAPID [Concomitant]
     Active Substance: INSULIN HUMAN
     Dosage: ACCORDING THE SCHEME, SOLUTION FOR INJECTION/INFUSION
     Route: 058
  15. IBUPROFEN. [Suspect]
     Active Substance: IBUPROFEN
     Dosage: 600 MG, 1?0?0?0
  16. VERAPAMIL [Concomitant]
     Active Substance: VERAPAMIL HYDROCHLORIDE
     Dosage: 120 MG, 1?0?1?0, TABLET
  17. ALBUTEROL. [Concomitant]
     Active Substance: ALBUTEROL
     Dosage: 0.1 MG, AS NEEDED, METERED?DOSE INHALERS
  18. ASS 100 [Concomitant]
     Active Substance: ASPIRIN
     Dosage: 100 MG, 0?1?0?0, METERED?DOSE INHALERS
  19. SPIRONOLACTONE. [Suspect]
     Active Substance: SPIRONOLACTONE
     Dosage: 50 MG, 0.5?0?0?0, TABLET

REACTIONS (6)
  - Rash [Recovering/Resolving]
  - Condition aggravated [Recovering/Resolving]
  - Dry skin [Recovering/Resolving]
  - Dyspnoea exertional [Recovering/Resolving]
  - Oedema peripheral [Recovering/Resolving]
  - Acute kidney injury [Recovering/Resolving]
